FAERS Safety Report 13748007 (Version 2)
Quarter: 2017Q3

REPORT INFORMATION
  Report Type: Spontaneous
  Country: US (occurrence: US)
  Receive Date: 20170713
  Receipt Date: 20170928
  Transmission Date: 20171127
  Serious: Yes (Hospitalization)
  Sender: FDA-Public Use
  Company Number: US-B.I. PHARMACEUTICALS,INC./RIDGEFIELD-2017-BI-038186

PATIENT
  Age: 65 Year
  Sex: Female
  Weight: 57 kg

DRUGS (4)
  1. COMBIVENT [Concomitant]
     Active Substance: ALBUTEROL SULFATE\IPRATROPIUM BROMIDE
     Indication: CHRONIC OBSTRUCTIVE PULMONARY DISEASE
     Dosage: FORM STRENGTH, UNIT DOSE: 18 MCG / 103 MCG, DAILY DOSE: 72 MCG/ 412 MCG;
     Route: 055
  2. ALBUTEROL. [Concomitant]
     Active Substance: ALBUTEROL
     Indication: CHRONIC OBSTRUCTIVE PULMONARY DISEASE
     Dosage: FORM STRENGTH, UNIT DOSE: 160/4.5MCG, DAILY DOSE: 640 MCG/ 18 MCG
     Route: 055
  3. SYMBICORT [Concomitant]
     Active Substance: BUDESONIDE\FORMOTEROL FUMARATE DIHYDRATE
     Indication: CHRONIC OBSTRUCTIVE PULMONARY DISEASE
     Dosage: TWICE DAILY;  FORM STRENGTH, UNIT DOSE: 164.5MCG AND DAILY DOSE: 329 MCG
     Route: 055
  4. SPIRIVA [Suspect]
     Active Substance: TIOTROPIUM BROMIDE MONOHYDRATE
     Indication: CHRONIC OBSTRUCTIVE PULMONARY DISEASE
     Route: 055
     Dates: start: 201507

REACTIONS (9)
  - Lip injury [Recovered/Resolved]
  - Dyspnoea [Recovered/Resolved]
  - Abnormal loss of weight [Not Recovered/Not Resolved]
  - Nasal injury [Recovered/Resolved]
  - Tremor [Not Recovered/Not Resolved]
  - Product contamination physical [Unknown]
  - Device malfunction [Unknown]
  - Decreased appetite [Not Recovered/Not Resolved]
  - Liquid product physical issue [Unknown]

NARRATIVE: CASE EVENT DATE: 201703
